FAERS Safety Report 4851852-2 (Version None)
Quarter: 2005Q4

REPORT INFORMATION
  Report Type: 
  Country: None (occurrence: None)
  Receive Date: 20051209
  Receipt Date: 20051130
  Transmission Date: 20060501
  Serious: Yes (Other)
  Sender: FDA-Public Use
  Company Number: 2005-10-1454

PATIENT
  Age: 16 Year
  Sex: Female

DRUGS (2)
  1. NASONEX [Suspect]
     Indication: SEASONAL ALLERGY
     Dosage: 10-MCG QD NASAL SPRAY
     Route: 045
     Dates: start: 20041101
  2. AZATHIOPRINE [Concomitant]

REACTIONS (1)
  - DEAFNESS [None]
